FAERS Safety Report 5239000-0 (Version None)
Quarter: 2007Q1

REPORT INFORMATION
  Report Type: 
  Country: None (occurrence: None)
  Receive Date: 20070209
  Receipt Date: 20070202
  Transmission Date: 20070707
  Serious: Yes (Hospitalization, Disabling)
  Sender: FDA-Public Use
  Company Number: 236019

PATIENT
  Age: 69 Year
  Sex: Male
  Weight: 78 kg

DRUGS (3)
  1. BEVACIZUMAB (BEVACIZUMAB) PWDR + SOLVENT, INFUSION SOLN, 100MG [Suspect]
     Indication: NON-SMALL CELL LUNG CANCER
     Dosage: 1395 MG, Q3W, INTRAVENOUS
     Route: 042
     Dates: start: 20061121
  2. CARBOPLATIN [Suspect]
     Indication: NON-SMALL CELL LUNG CANCER
     Dosage: 650 MG, Q3W, INTRAVENOUS
     Route: 042
     Dates: start: 20061121
  3. PACLITAXEL [Suspect]
     Indication: NON-SMALL CELL LUNG CANCER
     Dosage: 435 MG, Q3W, INTRAVENOUS
     Route: 042
     Dates: start: 20061121

REACTIONS (1)
  - EROSIVE OESOPHAGITIS [None]
